FAERS Safety Report 6417531-5 (Version None)
Quarter: 2009Q4

REPORT INFORMATION
  Report Type: 
  Country: None (occurrence: None)
  Receive Date: 20091028
  Receipt Date: 20091016
  Transmission Date: 20100525
  Serious: Yes (Death)
  Sender: FDA-Public Use
  Company Number: KR-PFIZER INC-2009284619

PATIENT
  Age: 16 Year

DRUGS (7)
  1. VORICONAZOLE [Suspect]
     Indication: ASPERGILLOSIS
     Dosage: 200 MG, 2X/DAY
     Route: 048
     Dates: start: 20070703, end: 20070711
  2. VANCOMYCIN [Concomitant]
     Indication: GRAFT VERSUS HOST DISEASE
     Dosage: 0.5 G, 4X/DAY
     Route: 042
     Dates: start: 20070622, end: 20070704
  3. MEROPENEM [Concomitant]
     Indication: GRAFT VERSUS HOST DISEASE
     Dosage: 0.5 G, 2X/DAY
     Route: 042
     Dates: start: 20070522, end: 20070706
  4. PANTOPRAZOLE [Concomitant]
     Indication: GASTRITIS
     Dosage: 20 MG, 1X/DAY
     Route: 042
     Dates: start: 20070510, end: 20070711
  5. METHYLPREDNISOLONE [Concomitant]
     Indication: IMMUNOSUPPRESSANT DRUG THERAPY
     Dosage: 125 MG, 1X/DAY
     Route: 042
     Dates: start: 20070706, end: 20070709
  6. CASPOFUNGIN [Concomitant]
     Indication: ASPERGILLOSIS
     Dosage: 50 MG, 1X/DAY
     Route: 041
     Dates: start: 20070704, end: 20070711
  7. PIPERACILLIN/TAZOBACTAM [Concomitant]
     Indication: GRAFT VERSUS HOST DISEASE
     Dosage: 4.5 G, 1X/DAY
     Route: 042
     Dates: start: 20070706, end: 20070711

REACTIONS (1)
  - DEATH [None]
